FAERS Safety Report 25007619 (Version 1)
Quarter: 2025Q1

REPORT INFORMATION
  Report Type: Spontaneous
  Country: US (occurrence: US)
  Receive Date: 20250225
  Receipt Date: 20250225
  Transmission Date: 20250409
  Serious: No
  Sender: ELI LILLY AND COMPANY
  Company Number: US-ELI_LILLY_AND_COMPANY-US202502017154

PATIENT
  Age: 53 Year
  Sex: Female

DRUGS (75)
  1. MOUNJARO [Suspect]
     Active Substance: TIRZEPATIDE
     Indication: Type 2 diabetes mellitus
     Route: 065
     Dates: start: 20240331
  2. MOUNJARO [Suspect]
     Active Substance: TIRZEPATIDE
     Indication: Type 2 diabetes mellitus
     Route: 065
     Dates: start: 20240331
  3. MOUNJARO [Suspect]
     Active Substance: TIRZEPATIDE
     Indication: Type 2 diabetes mellitus
     Route: 065
     Dates: start: 20240331
  4. MOUNJARO [Suspect]
     Active Substance: TIRZEPATIDE
     Indication: Type 2 diabetes mellitus
     Route: 065
     Dates: start: 20240331
  5. MOUNJARO [Suspect]
     Active Substance: TIRZEPATIDE
     Indication: Hyperglycaemia
  6. MOUNJARO [Suspect]
     Active Substance: TIRZEPATIDE
     Indication: Hyperglycaemia
  7. MOUNJARO [Suspect]
     Active Substance: TIRZEPATIDE
     Indication: Hyperglycaemia
  8. MOUNJARO [Suspect]
     Active Substance: TIRZEPATIDE
     Indication: Hyperglycaemia
  9. MOUNJARO [Suspect]
     Active Substance: TIRZEPATIDE
     Indication: Blood pressure abnormal
  10. MOUNJARO [Suspect]
     Active Substance: TIRZEPATIDE
     Indication: Blood pressure abnormal
  11. MOUNJARO [Suspect]
     Active Substance: TIRZEPATIDE
     Indication: Blood pressure abnormal
  12. MOUNJARO [Suspect]
     Active Substance: TIRZEPATIDE
     Indication: Blood pressure abnormal
  13. MOUNJARO [Suspect]
     Active Substance: TIRZEPATIDE
     Indication: Type 2 diabetes mellitus
     Route: 065
  14. MOUNJARO [Suspect]
     Active Substance: TIRZEPATIDE
     Indication: Type 2 diabetes mellitus
     Route: 065
  15. MOUNJARO [Suspect]
     Active Substance: TIRZEPATIDE
     Indication: Type 2 diabetes mellitus
     Route: 065
  16. MOUNJARO [Suspect]
     Active Substance: TIRZEPATIDE
     Indication: Type 2 diabetes mellitus
     Route: 065
  17. MOUNJARO [Suspect]
     Active Substance: TIRZEPATIDE
     Indication: Hyperglycaemia
  18. MOUNJARO [Suspect]
     Active Substance: TIRZEPATIDE
     Indication: Hyperglycaemia
  19. MOUNJARO [Suspect]
     Active Substance: TIRZEPATIDE
     Indication: Hyperglycaemia
  20. MOUNJARO [Suspect]
     Active Substance: TIRZEPATIDE
     Indication: Hyperglycaemia
  21. MOUNJARO [Suspect]
     Active Substance: TIRZEPATIDE
     Indication: Blood pressure abnormal
  22. MOUNJARO [Suspect]
     Active Substance: TIRZEPATIDE
     Indication: Blood pressure abnormal
  23. MOUNJARO [Suspect]
     Active Substance: TIRZEPATIDE
     Indication: Blood pressure abnormal
  24. MOUNJARO [Suspect]
     Active Substance: TIRZEPATIDE
     Indication: Blood pressure abnormal
  25. MOUNJARO [Suspect]
     Active Substance: TIRZEPATIDE
     Indication: Type 2 diabetes mellitus
     Route: 065
  26. MOUNJARO [Suspect]
     Active Substance: TIRZEPATIDE
     Indication: Type 2 diabetes mellitus
     Route: 065
  27. MOUNJARO [Suspect]
     Active Substance: TIRZEPATIDE
     Indication: Type 2 diabetes mellitus
     Route: 065
  28. MOUNJARO [Suspect]
     Active Substance: TIRZEPATIDE
     Indication: Type 2 diabetes mellitus
     Route: 065
  29. MOUNJARO [Suspect]
     Active Substance: TIRZEPATIDE
     Indication: Hyperglycaemia
  30. MOUNJARO [Suspect]
     Active Substance: TIRZEPATIDE
     Indication: Hyperglycaemia
  31. MOUNJARO [Suspect]
     Active Substance: TIRZEPATIDE
     Indication: Hyperglycaemia
  32. MOUNJARO [Suspect]
     Active Substance: TIRZEPATIDE
     Indication: Hyperglycaemia
  33. MOUNJARO [Suspect]
     Active Substance: TIRZEPATIDE
     Indication: Blood pressure abnormal
  34. MOUNJARO [Suspect]
     Active Substance: TIRZEPATIDE
     Indication: Blood pressure abnormal
  35. MOUNJARO [Suspect]
     Active Substance: TIRZEPATIDE
     Indication: Blood pressure abnormal
  36. MOUNJARO [Suspect]
     Active Substance: TIRZEPATIDE
     Indication: Blood pressure abnormal
  37. MOUNJARO [Suspect]
     Active Substance: TIRZEPATIDE
     Indication: Type 2 diabetes mellitus
     Route: 065
  38. MOUNJARO [Suspect]
     Active Substance: TIRZEPATIDE
     Indication: Type 2 diabetes mellitus
     Route: 065
  39. MOUNJARO [Suspect]
     Active Substance: TIRZEPATIDE
     Indication: Type 2 diabetes mellitus
     Route: 065
  40. MOUNJARO [Suspect]
     Active Substance: TIRZEPATIDE
     Indication: Type 2 diabetes mellitus
     Route: 065
  41. MOUNJARO [Suspect]
     Active Substance: TIRZEPATIDE
     Indication: Hyperglycaemia
  42. MOUNJARO [Suspect]
     Active Substance: TIRZEPATIDE
     Indication: Hyperglycaemia
  43. MOUNJARO [Suspect]
     Active Substance: TIRZEPATIDE
     Indication: Hyperglycaemia
  44. MOUNJARO [Suspect]
     Active Substance: TIRZEPATIDE
     Indication: Hyperglycaemia
  45. MOUNJARO [Suspect]
     Active Substance: TIRZEPATIDE
     Indication: Blood pressure abnormal
  46. MOUNJARO [Suspect]
     Active Substance: TIRZEPATIDE
     Indication: Blood pressure abnormal
  47. MOUNJARO [Suspect]
     Active Substance: TIRZEPATIDE
     Indication: Blood pressure abnormal
  48. MOUNJARO [Suspect]
     Active Substance: TIRZEPATIDE
     Indication: Blood pressure abnormal
  49. MOUNJARO [Suspect]
     Active Substance: TIRZEPATIDE
     Indication: Hyperglycaemia
     Route: 065
  50. MOUNJARO [Suspect]
     Active Substance: TIRZEPATIDE
     Indication: Hyperglycaemia
     Route: 065
  51. MOUNJARO [Suspect]
     Active Substance: TIRZEPATIDE
     Indication: Hyperglycaemia
     Route: 065
  52. MOUNJARO [Suspect]
     Active Substance: TIRZEPATIDE
     Indication: Hyperglycaemia
     Route: 065
  53. MOUNJARO [Suspect]
     Active Substance: TIRZEPATIDE
     Indication: Type 2 diabetes mellitus
  54. MOUNJARO [Suspect]
     Active Substance: TIRZEPATIDE
     Indication: Type 2 diabetes mellitus
  55. MOUNJARO [Suspect]
     Active Substance: TIRZEPATIDE
     Indication: Type 2 diabetes mellitus
  56. MOUNJARO [Suspect]
     Active Substance: TIRZEPATIDE
     Indication: Type 2 diabetes mellitus
  57. MOUNJARO [Suspect]
     Active Substance: TIRZEPATIDE
     Indication: Blood pressure abnormal
  58. MOUNJARO [Suspect]
     Active Substance: TIRZEPATIDE
     Indication: Blood pressure abnormal
  59. MOUNJARO [Suspect]
     Active Substance: TIRZEPATIDE
     Indication: Blood pressure abnormal
  60. MOUNJARO [Suspect]
     Active Substance: TIRZEPATIDE
     Indication: Blood pressure abnormal
  61. MOUNJARO [Suspect]
     Active Substance: TIRZEPATIDE
     Indication: Type 2 diabetes mellitus
     Route: 065
  62. MOUNJARO [Suspect]
     Active Substance: TIRZEPATIDE
     Indication: Type 2 diabetes mellitus
     Route: 065
  63. MOUNJARO [Suspect]
     Active Substance: TIRZEPATIDE
     Indication: Type 2 diabetes mellitus
     Route: 065
  64. MOUNJARO [Suspect]
     Active Substance: TIRZEPATIDE
     Indication: Type 2 diabetes mellitus
     Route: 065
  65. MOUNJARO [Suspect]
     Active Substance: TIRZEPATIDE
     Indication: Type 2 diabetes mellitus
     Route: 065
  66. MOUNJARO [Suspect]
     Active Substance: TIRZEPATIDE
     Indication: Hyperglycaemia
     Route: 065
  67. MOUNJARO [Suspect]
     Active Substance: TIRZEPATIDE
     Indication: Hyperglycaemia
     Route: 065
  68. MOUNJARO [Suspect]
     Active Substance: TIRZEPATIDE
     Indication: Hyperglycaemia
     Route: 065
  69. MOUNJARO [Suspect]
     Active Substance: TIRZEPATIDE
     Indication: Hyperglycaemia
     Route: 065
  70. MOUNJARO [Suspect]
     Active Substance: TIRZEPATIDE
     Indication: Hyperglycaemia
     Route: 065
  71. MOUNJARO [Suspect]
     Active Substance: TIRZEPATIDE
     Indication: Blood pressure abnormal
  72. MOUNJARO [Suspect]
     Active Substance: TIRZEPATIDE
     Indication: Blood pressure abnormal
  73. MOUNJARO [Suspect]
     Active Substance: TIRZEPATIDE
     Indication: Blood pressure abnormal
  74. MOUNJARO [Suspect]
     Active Substance: TIRZEPATIDE
     Indication: Blood pressure abnormal
  75. MOUNJARO [Suspect]
     Active Substance: TIRZEPATIDE
     Indication: Blood pressure abnormal

REACTIONS (4)
  - Incorrect dose administered [Unknown]
  - Dysphonia [Recovering/Resolving]
  - Feeling abnormal [Unknown]
  - Injection site mass [Unknown]

NARRATIVE: CASE EVENT DATE: 20250221
